FAERS Safety Report 9857385 (Version 1)
Quarter: 2014Q1

REPORT INFORMATION
  Report Type: Spontaneous
  Country: US (occurrence: US)
  Receive Date: 20140131
  Receipt Date: 20140131
  Transmission Date: 20141002
  Serious: Yes (Other)
  Sender: FDA-Public Use
  Company Number: US-AMGEN-USASP2014006105

PATIENT
  Age: 18 Year
  Sex: Female
  Weight: 52.15 kg

DRUGS (5)
  1. ENBREL [Suspect]
     Indication: PRODUCT USED FOR UNKNOWN INDICATION
     Dosage: 25 MG, 2 TIMES/WK
     Route: 058
  2. NAPROXEN [Concomitant]
     Dosage: 375 MG, UNK
  3. METHOTREXATE [Concomitant]
     Dosage: 2.5 MG, UNK
  4. FLUOXETINE [Concomitant]
     Dosage: 10 MG, UNK
  5. LOESTRIN [Concomitant]
     Dosage: 21 TAB 1.5/30

REACTIONS (4)
  - Depression [Unknown]
  - Anxiety [Unknown]
  - Arthralgia [Unknown]
  - Nasopharyngitis [Unknown]
